FAERS Safety Report 8004769-9 (Version None)
Quarter: 2011Q4

REPORT INFORMATION
  Report Type: 
  Country: None (occurrence: None)
  Receive Date: 20111223
  Receipt Date: 20111213
  Transmission Date: 20120403
  Serious: Yes (Hospitalization)
  Sender: FDA-Public Use
  Company Number: US-BRISTOL-MYERS SQUIBB COMPANY-16295610

PATIENT
  Age: 56 Year
  Sex: Male

DRUGS (7)
  1. BLINDED: PLACEBO [Suspect]
     Indication: TYPE 2 DIABETES MELLITUS
     Dates: start: 20100929
  2. LANTUS [Suspect]
     Indication: TYPE 2 DIABETES MELLITUS
  3. METFORMIN HCL [Suspect]
     Indication: TYPE 2 DIABETES MELLITUS
  4. BLINDED: SAXAGLIPTIN [Suspect]
     Indication: TYPE 2 DIABETES MELLITUS
     Dates: start: 20100929
  5. HUMALOG [Suspect]
     Indication: TYPE 2 DIABETES MELLITUS
  6. LISINOPRIL [Suspect]
     Dates: end: 20111010
  7. ASPIRIN [Concomitant]

REACTIONS (1)
  - ANGIOEDEMA [None]
